FAERS Safety Report 9160723 (Version 4)
Quarter: 2013Q2

REPORT INFORMATION
  Report Type: Report from Study
  Country: US (occurrence: US)
  Receive Date: 20130313
  Receipt Date: 20130628
  Transmission Date: 20140414
  Serious: Yes (Hospitalization, Other)
  Sender: FDA-Public Use
  Company Number: US-ABBOTT-13P-163-1059014-00

PATIENT
  Age: 64 Year
  Sex: Male

DRUGS (14)
  1. HUMIRA [Suspect]
     Indication: CROHN^S DISEASE
     Route: 058
     Dates: start: 201210
  2. HUMIRA [Suspect]
     Indication: CROHN^S DISEASE
     Dates: start: 20130307, end: 20130527
  3. CIPRO [Concomitant]
     Indication: HEPATIC INFECTION
  4. ATARAX [Concomitant]
     Indication: PRURITUS
  5. ULTRAM [Concomitant]
     Indication: PAIN
  6. IRON [Concomitant]
     Indication: MINERAL SUPPLEMENTATION
  7. VITAMIN C [Concomitant]
     Indication: PRODUCT USED FOR UNKNOWN INDICATION
  8. VITAMIN D [Concomitant]
     Indication: PRODUCT USED FOR UNKNOWN INDICATION
  9. SAW PALMETO [Concomitant]
     Indication: PROSTATIC DISORDER
  10. PRILOSEC [Concomitant]
     Indication: DYSPEPSIA
  11. MILK THISTLE [Concomitant]
     Indication: LIVER DISORDER
  12. WELCHOL [Concomitant]
     Indication: PRODUCT USED FOR UNKNOWN INDICATION
     Dates: start: 20130618
  13. PLAVIX [Concomitant]
     Indication: CARDIAC DISORDER
     Dosage: DOSE UNKNOWN
  14. PLAVIX [Concomitant]
     Indication: CARDIAC DISORDER

REACTIONS (14)
  - Blood pressure abnormal [Recovered/Resolved]
  - Chest pain [Recovered/Resolved]
  - Dyspnoea [Recovered/Resolved]
  - Coronary artery occlusion [Unknown]
  - Circulatory collapse [Unknown]
  - Palpitations [Unknown]
  - Crohn^s disease [Unknown]
  - Fistula [Recovering/Resolving]
  - Chest pain [Unknown]
  - Heart rate increased [Recovered/Resolved]
  - Irritable bowel syndrome [Unknown]
  - Pouchitis [Unknown]
  - Frequent bowel movements [Unknown]
  - Pain [Unknown]
